FAERS Safety Report 12403242 (Version 2)
Quarter: 2016Q3

REPORT INFORMATION
  Report Type: Spontaneous
  Country: US (occurrence: US)
  Receive Date: 20160418
  Receipt Date: 20160901
  Transmission Date: 20161109
  Serious: Yes (Hospitalization)
  Sender: FDA-Public Use
  Company Number: US-RELYPSA-RLY2016000403

PATIENT
  Age: 50 Year
  Sex: Male

DRUGS (25)
  1. VITAMIN B12 [Concomitant]
     Active Substance: CYANOCOBALAMIN
  2. ONDANSETRON [Concomitant]
     Active Substance: ONDANSETRON
  3. GLUCOSE [Concomitant]
     Active Substance: DEXTROSE
  4. CALCIUM CARBONATE. [Concomitant]
     Active Substance: CALCIUM CARBONATE
  5. ACETAMINOPHEN. [Concomitant]
     Active Substance: ACETAMINOPHEN
  6. VELTASSA [Suspect]
     Active Substance: PATIROMER
     Indication: HYPERKALAEMIA
     Dosage: 8.4 G, BID
     Route: 048
     Dates: start: 20160323
  7. LEVEMIR [Concomitant]
     Active Substance: INSULIN DETEMIR
  8. FLORASTOR [Concomitant]
     Active Substance: SACCHAROMYCES CEREVISIAE
  9. BISAC EVAC [Concomitant]
  10. LOPERAMIDE [Concomitant]
     Active Substance: LOPERAMIDE
  11. GABAPENTIN. [Concomitant]
     Active Substance: GABAPENTIN
  12. FLUTICASONE PROPIONATE. [Concomitant]
     Active Substance: FLUTICASONE PROPIONATE
  13. RENVELA [Concomitant]
     Active Substance: SEVELAMER CARBONATE
  14. VITAMIN D                          /00107901/ [Concomitant]
     Active Substance: ERGOCALCIFEROL
  15. ZENPEP [Concomitant]
     Active Substance: PANCRELIPASE AMYLASE\PANCRELIPASE LIPASE\PANCRELIPASE PROTEASE
  16. OXYCODONE HYDROCHLORIDE. [Concomitant]
     Active Substance: OXYCODONE HYDROCHLORIDE
  17. MILK OF MAGNESIA [Concomitant]
     Active Substance: MAGNESIUM HYDROXIDE
  18. HUMALOG [Concomitant]
     Active Substance: INSULIN LISPRO
  19. ARTIFICIAL TEARS                   /00222401/ [Concomitant]
  20. MIRTAZAPINE. [Concomitant]
     Active Substance: MIRTAZAPINE
  21. LACTOBACILLUS [Concomitant]
     Active Substance: LACTOBACILLUS ACIDOPHILUS
  22. SEROQUEL [Concomitant]
     Active Substance: QUETIAPINE FUMARATE
  23. PAROXETINE HCL [Concomitant]
     Active Substance: PAROXETINE HYDROCHLORIDE
  24. OMEPRAZOLE. [Concomitant]
     Active Substance: OMEPRAZOLE
  25. LOMOTIL [Concomitant]
     Active Substance: ATROPINE SULFATE\DIPHENOXYLATE HYDROCHLORIDE

REACTIONS (1)
  - Pneumonia [Unknown]

NARRATIVE: CASE EVENT DATE: 20160413
